FAERS Safety Report 8103079-9 (Version None)
Quarter: 2012Q1

REPORT INFORMATION
  Report Type: 
  Country: None (occurrence: None)
  Receive Date: 20120201
  Receipt Date: 20120201
  Transmission Date: 20120608
  Serious: Yes (Life-Threatening, Hospitalization)
  Sender: FDA-Public Use
  Company Number: None

PATIENT
  Sex: Female
  Weight: 82.553 kg

DRUGS (1)
  1. CELEBREX [Suspect]

REACTIONS (4)
  - DYSARTHRIA [None]
  - HEADACHE [None]
  - CONFUSIONAL STATE [None]
  - NEUROLOGICAL SYMPTOM [None]
